FAERS Safety Report 6411658-X (Version None)
Quarter: 2009Q4

REPORT INFORMATION
  Report Type: 
  Country: None (occurrence: None)
  Receive Date: 20091023
  Receipt Date: 20091019
  Transmission Date: 20100525
  Serious: Yes (Death)
  Sender: FDA-Public Use
  Company Number: US-ROCHE-658811

PATIENT
  Sex: Female
  Weight: 45.4 kg

DRUGS (10)
  1. CAPECITABINE [Suspect]
     Indication: COLORECTAL CANCER
     Dosage: X 14 DAYS
     Route: 048
     Dates: start: 20090813, end: 20090903
  2. BEVACIZUMAB [Suspect]
     Indication: COLON CANCER
     Dosage: FREQUENCY REPORTED AS ^EVERY 21^
     Route: 042
     Dates: start: 20090813, end: 20090903
  3. HCL [Concomitant]
  4. PEPCID [Concomitant]
  5. LASIX [Concomitant]
  6. MAG-OX [Concomitant]
  7. METOPROLOL [Concomitant]
  8. ENALAPRIL MALEATE [Concomitant]
  9. M.V.I. [Concomitant]
     Dosage: FREQUENCY REPORTED AS 10 QD
  10. MEGACE [Concomitant]

REACTIONS (1)
  - DEATH [None]
